FAERS Safety Report 17467382 (Version 2)
Quarter: 2020Q1

REPORT INFORMATION
  Report Type: Spontaneous
  Country: US (occurrence: US)
  Receive Date: 20200227
  Receipt Date: 20200302
  Transmission Date: 20200409
  Serious: No
  Sender: FDA-Public Use
  Company Number: US-PFIZER INC-2020085703

PATIENT
  Age: 40 Year
  Sex: Male
  Weight: 68.95 kg

DRUGS (1)
  1. ATORVASTATIN CALCIUM. [Suspect]
     Active Substance: ATORVASTATIN CALCIUM
     Indication: BLOOD CHOLESTEROL
     Dosage: .5 DF, 1X/DAY

REACTIONS (2)
  - Fatigue [Unknown]
  - Product prescribing error [Unknown]
